FAERS Safety Report 7393053-2 (Version None)
Quarter: 2011Q2

REPORT INFORMATION
  Report Type: 
  Country: None (occurrence: None)
  Receive Date: 20110404
  Receipt Date: 20110322
  Transmission Date: 20111010
  Serious: Yes (Other)
  Sender: FDA-Public Use
  Company Number: JP-WATSON-2011-04072

PATIENT
  Age: 73 Year
  Sex: Female

DRUGS (2)
  1. MORPHINE SULFATE [Suspect]
     Indication: MULTIPLE MYELOMA
  2. MORPHINE SULFATE [Suspect]
     Indication: PAIN
     Dosage: UNK

REACTIONS (1)
  - DERMATITIS EXFOLIATIVE [None]
